FAERS Safety Report 5412927-2 (Version None)
Quarter: 2007Q3

REPORT INFORMATION
  Report Type: 
  Country: None (occurrence: None)
  Receive Date: 20070809
  Receipt Date: 20070725
  Transmission Date: 20080115
  Serious: Yes (Hospitalization)
  Sender: FDA-Public Use
  Company Number: PAR_01663_2007

PATIENT
  Age: 28 Year
  Sex: Male

DRUGS (2)
  1. IBUPROFEN [Suspect]
     Indication: TOOTHACHE
     Dosage: (2400 MG ORAL)
     Route: 048
  2. ACETAMINOPHEN [Suspect]
     Indication: TOOTHACHE
     Dosage: (7000 G ORAL)
     Route: 048

REACTIONS (2)
  - ACCIDENTAL OVERDOSE [None]
  - PULPITIS DENTAL [None]
